FAERS Safety Report 6062507-3 (Version None)
Quarter: 2009Q1

REPORT INFORMATION
  Report Type: 
  Country: None (occurrence: None)
  Receive Date: 20090202
  Receipt Date: 20090202
  Transmission Date: 20090719
  Serious: Yes (Death)
  Sender: FDA-Public Use
  Company Number: None

PATIENT
  Age: 72 Year
  Sex: Female
  Weight: 64.4108 kg

DRUGS (1)
  1. FENTANYL [Suspect]
     Indication: PANCREATIC CARCINOMA
     Dosage: 12 MCG/HR 72 HRS TRANSDERMAL
     Route: 062
     Dates: start: 20080412, end: 20081009

REACTIONS (6)
  - CONFUSIONAL STATE [None]
  - DEHYDRATION [None]
  - HYPOPHAGIA [None]
  - HYPOVENTILATION [None]
  - INCOHERENT [None]
  - PNEUMONIA [None]
